FAERS Safety Report 18771645 (Version 2)
Quarter: 2021Q1

REPORT INFORMATION
  Report Type: Spontaneous
  Country: US (occurrence: US)
  Receive Date: 20210122
  Receipt Date: 20210122
  Transmission Date: 20210419
  Serious: No
  Sender: FDA-Public Use
  Company Number: US-PCCINC-2020-PEL-000146

PATIENT

DRUGS (2)
  1. GABLOFEN [Suspect]
     Active Substance: BACLOFEN
     Indication: MUSCLE SPASTICITY
     Dosage: 121.48 MICROGRAM/DAY
     Route: 037
  2. GABLOFEN [Suspect]
     Active Substance: BACLOFEN
     Dosage: 134.8  MICROGRAM/DAY
     Route: 037

REACTIONS (4)
  - Muscle tightness [Recovered/Resolved]
  - Hypertonia [Recovered/Resolved]
  - Device infusion issue [Recovered/Resolved]
  - Device malfunction [Recovered/Resolved]
